FAERS Safety Report 10019651 (Version 1)
Quarter: 2014Q1

REPORT INFORMATION
  Report Type: Spontaneous
  Country: GB (occurrence: GB)
  Receive Date: 20140318
  Receipt Date: 20140318
  Transmission Date: 20141002
  Serious: Yes (Hospitalization)
  Sender: FDA-Public Use
  Company Number: GB-WATSON-2014-04851

PATIENT
  Age: 82 Year
  Sex: Male
  Weight: 65 kg

DRUGS (9)
  1. PREDNISOLONE (UNKNOWN) [Suspect]
     Indication: AUTOIMMUNE DISORDER
     Dosage: 70 MG, DAILY; INITIALLY
     Route: 065
  2. PREDNISOLONE (UNKNOWN) [Suspect]
     Dosage: 10 MG, DAILY
     Route: 065
  3. AMIAS [Concomitant]
     Indication: MYOCARDIAL INFARCTION
     Dosage: 8 MG, DAILY
     Route: 065
  4. BUMETANIDE [Concomitant]
     Indication: MYOCARDIAL INFARCTION
     Dosage: 1 MG, BID
     Route: 065
  5. CARDICOR [Concomitant]
     Indication: MYOCARDIAL INFARCTION
     Dosage: 2.5 MG, DAILY
     Route: 065
  6. INFLUENZA VIRUS [Concomitant]
     Indication: PRODUCT USED FOR UNKNOWN INDICATION
     Dosage: UNK
     Route: 065
     Dates: start: 20131111, end: 20131111
  7. OMEPRAZOLE [Concomitant]
     Indication: PROPHYLAXIS
     Dosage: 20 MG, DAILY
     Route: 065
  8. ASPIRIN [Concomitant]
     Indication: PRODUCT USED FOR UNKNOWN INDICATION
     Dosage: UNK
     Route: 065
  9. FOLIC ACID [Concomitant]
     Indication: PRODUCT USED FOR UNKNOWN INDICATION
     Dosage: 5 MG, DAILY
     Route: 065

REACTIONS (1)
  - Type 2 diabetes mellitus [Not Recovered/Not Resolved]
